FAERS Safety Report 16606410 (Version 3)
Quarter: 2021Q1

REPORT INFORMATION
  Report Type: Spontaneous
  Country: DE (occurrence: DE)
  Receive Date: 20190722
  Receipt Date: 20210121
  Transmission Date: 20210419
  Serious: Yes (Other)
  Sender: FDA-Public Use
  Company Number: DE-AUROBINDO-AUR-APL-2019-042341

PATIENT
  Sex: Female

DRUGS (1)
  1. LEVETIRACETAM AUROBINDO ORAL SOLUTION [Suspect]
     Active Substance: LEVETIRACETAM
     Indication: BRAIN INJURY
     Dosage: UNK
     Route: 048

REACTIONS (2)
  - Product substitution issue [Unknown]
  - Seizure [Unknown]
